FAERS Safety Report 23858852 (Version 1)
Quarter: 2024Q2

REPORT INFORMATION
  Report Type: Spontaneous
  Country: IN (occurrence: IN)
  Receive Date: 20240515
  Receipt Date: 20240515
  Transmission Date: 20240716
  Serious: Yes (Other)
  Sender: FDA-Public Use
  Company Number: IN-002147023-NVSC2024IN099633

PATIENT
  Age: 61 Year
  Sex: Male

DRUGS (3)
  1. IMATINIB [Suspect]
     Active Substance: IMATINIB
     Indication: Chronic myeloid leukaemia
     Dosage: 400 MG ONCE DAILY FOR THE LAST 1 MONTH
     Route: 065
  2. IMATINIB [Suspect]
     Active Substance: IMATINIB
     Dosage: LOWER DOSE OF  200 MG OD
     Route: 065
  3. NILOTINIB [Suspect]
     Active Substance: NILOTINIB
     Indication: Chronic myeloid leukaemia
     Dosage: 400 MG
     Route: 065

REACTIONS (2)
  - Dermatitis exfoliative generalised [Unknown]
  - Drug eruption [Unknown]
